FAERS Safety Report 24211963 (Version 1)
Quarter: 2024Q3

REPORT INFORMATION
  Report Type: Report from Study
  Country: US (occurrence: US)
  Receive Date: 20240814
  Receipt Date: 20240814
  Transmission Date: 20241016
  Serious: Yes (Other)
  Sender: ABBVIE
  Company Number: US-ABBVIE-5813168

PATIENT
  Sex: Male
  Weight: 58.06 kg

DRUGS (1)
  1. SKYRIZI [Suspect]
     Active Substance: RISANKIZUMAB-RZAA
     Indication: Crohn^s disease
     Route: 042
     Dates: start: 20240329

REACTIONS (2)
  - Temporomandibular pain and dysfunction syndrome [Not Recovered/Not Resolved]
  - Infection [Recovered/Resolved]

NARRATIVE: CASE EVENT DATE: 20240101
